FAERS Safety Report 16031436 (Version 2)
Quarter: 2019Q2

REPORT INFORMATION
  Report Type: Spontaneous
  Country: CA (occurrence: CA)
  Receive Date: 20190304
  Receipt Date: 20190415
  Transmission Date: 20190711
  Serious: Yes (Death, Hospitalization, Other)
  Sender: FDA-Public Use
  Company Number: CA-PURDUE PHARMA-CAN-2019-0009725

PATIENT
  Age: 55 Year
  Sex: Female

DRUGS (5)
  1. BIPHENTIN [Suspect]
     Active Substance: METHYLPHENIDATE
     Dosage: 40 MG, UNK
     Route: 065
     Dates: start: 20180427, end: 20180706
  2. MORPHINE SULFATE. [Suspect]
     Active Substance: MORPHINE SULFATE
     Indication: ANALGESIC THERAPY
     Dosage: UNK
     Route: 065
  3. TECTA [Concomitant]
     Active Substance: PANTOPRAZOLE MAGNESIUM
     Indication: GASTRITIS
     Dosage: 40 MG, UNK
     Route: 048
     Dates: start: 20180518
  4. BIPHENTIN [Suspect]
     Active Substance: METHYLPHENIDATE
     Indication: ATTENTION DEFICIT/HYPERACTIVITY DISORDER
     Dosage: 25 MG, UNK
     Route: 065
     Dates: start: 20180412, end: 20180427
  5. BIPHENTIN [Suspect]
     Active Substance: METHYLPHENIDATE
     Dosage: 60 MG, DAILY
     Route: 048
     Dates: start: 20180706

REACTIONS (8)
  - Aortic intramural haematoma [Fatal]
  - Myocardial infarction [Fatal]
  - Myocardial ischaemia [Fatal]
  - Cardiac arrest [Fatal]
  - Agitation [Unknown]
  - Coronary artery dissection [Fatal]
  - Abdominal pain [Unknown]
  - Abdominal pain [Unknown]

NARRATIVE: CASE EVENT DATE: 20180727
